FAERS Safety Report 8609740-1 (Version None)
Quarter: 2012Q3

REPORT INFORMATION
  Report Type: 
  Country: None (occurrence: None)
  Receive Date: 20120821
  Receipt Date: 20120814
  Transmission Date: 20120928
  Serious: Yes (Death, Hospitalization)
  Sender: FDA-Public Use
  Company Number: US-BAXTER-2012BAX014428

PATIENT
  Sex: Female

DRUGS (3)
  1. DIANEAL [Suspect]
     Indication: PERITONEAL DIALYSIS
     Route: 033
     Dates: end: 20120803
  2. DIANEAL [Suspect]
     Route: 033
     Dates: end: 20120803
  3. DIANEAL [Suspect]
     Route: 033
     Dates: end: 20120803

REACTIONS (2)
  - MITRAL VALVE INCOMPETENCE [None]
  - CARDIAC ARREST [None]
